FAERS Safety Report 4431432-3 (Version None)
Quarter: 2004Q3

REPORT INFORMATION
  Report Type: 
  Country: None (occurrence: None)
  Receive Date: 20040818
  Receipt Date: 20040802
  Transmission Date: 20050211
  Serious: No
  Sender: FDA-Public Use
  Company Number: A01200403763

PATIENT
  Age: 70 Year
  Sex: Male

DRUGS (6)
  1. (CLOPIDOGREL) [Suspect]
     Indication: ACUTE MYOCARDIAL INFARCTION
     Dosage: 600 MG ONCE, ORAL
     Route: 048
     Dates: start: 20040209, end: 20040209
  2. HEPARIN SODIUM [Suspect]
     Indication: ACUTE MYOCARDIAL INFARCTION
     Dosage: 5 UNIT QD, INTRAVENOUS NOS
     Route: 042
     Dates: start: 20040209, end: 20040209
  3. ADRENALINE [Concomitant]
  4. LIGNOCANE (LIGNOCAINE) [Concomitant]
  5. MIDAZOLAM HCL [Concomitant]
  6. NORADRENALINE [Concomitant]

REACTIONS (2)
  - ACTIVATED PARTIAL THROMBOPLASTIN TIME PROLONGED [None]
  - HAEMORRHAGE [None]
